FAERS Safety Report 8980064 (Version 2)
Quarter: 2013Q1

REPORT INFORMATION
  Report Type: Spontaneous
  Country: US (occurrence: US)
  Receive Date: 20121221
  Receipt Date: 20130103
  Transmission Date: 20140127
  Serious: Yes (Other)
  Sender: FDA-Public Use
  Company Number: CHPA2012US025298

PATIENT
  Age: 69 Year
  Sex: Female

DRUGS (2)
  1. BENEFIBER W/ WHEAT DEXTRIN [Suspect]
     Indication: BLOOD CHOLESTEROL ABNORMAL
     Dosage: 4.5 TSP, QD
     Route: 048
     Dates: start: 2005
  2. BENEFIBER PLUS CALCIUM WITH WHEAT DEXTRIN [Suspect]
     Indication: BLOOD CHOLESTEROL ABNORMAL
     Dosage: 4.5 TSP, QD
     Route: 048

REACTIONS (10)
  - Allergy to metals [Recovered/Resolved]
  - Chondropathy [Recovered/Resolved]
  - Fluid retention [Recovered/Resolved]
  - Inflammation [Recovered/Resolved]
  - Pain in extremity [Recovered/Resolved]
  - Blood heavy metal increased [Recovered/Resolved]
  - Malaise [Recovered/Resolved]
  - Therapeutic response unexpected [Unknown]
  - Off label use [Unknown]
  - Incorrect dose administered [Unknown]
